FAERS Safety Report 7001266-4 (Version None)
Quarter: 2010Q3

REPORT INFORMATION
  Report Type: 
  Country: None (occurrence: None)
  Receive Date: 20100920
  Receipt Date: 20100906
  Transmission Date: 20110219
  Serious: Yes (Death)
  Sender: FDA-Public Use
  Company Number: IL-ROCHE-725663

PATIENT
  Age: 54 Year
  Sex: Male

DRUGS (8)
  1. PEGASYS [Suspect]
     Indication: HEPATITIS C
     Route: 058
  2. PEGASYS [Suspect]
     Dosage: DOSE REDUCED.
     Route: 058
     Dates: start: 20100601
  3. PEGASYS [Suspect]
     Dosage: DOSE REDUCED.
     Route: 058
     Dates: start: 20100701
  4. PEGASYS [Suspect]
     Route: 058
     Dates: start: 20100719, end: 20100722
  5. COPEGUS [Suspect]
     Indication: HEPATITIS C
     Route: 048
  6. COPEGUS [Suspect]
     Dosage: DOSE REDUCED.
     Route: 048
     Dates: start: 20100601
  7. COPEGUS [Suspect]
     Dosage: DOSE REDUCED.
     Route: 048
     Dates: start: 20100701
  8. COPEGUS [Suspect]
     Route: 048
     Dates: start: 20100719, end: 20100722

REACTIONS (5)
  - ANAEMIA [None]
  - ASTHENIA [None]
  - HYPOALBUMINAEMIA [None]
  - PANCYTOPENIA [None]
  - SEPTIC SHOCK [None]
